FAERS Safety Report 7861584-4 (Version None)
Quarter: 2011Q4

REPORT INFORMATION
  Report Type: 
  Country: None (occurrence: None)
  Receive Date: 20111027
  Receipt Date: 20111020
  Transmission Date: 20120403
  Serious: Yes (Death, Life-Threatening, Hospitalization)
  Sender: FDA-Public Use
  Company Number: JP-AMGEN-JPNCT2011017267

PATIENT
  Age: 65 Year
  Sex: Male
  Weight: 47 kg

DRUGS (26)
  1. FLUOROURACIL [Suspect]
     Indication: COLORECTAL CANCER
     Route: 040
     Dates: start: 20100715, end: 20101027
  2. PANITUMUMAB [Suspect]
     Indication: COLORECTAL CANCER
     Dosage: 6 MG/KG, Q2WK
     Route: 041
     Dates: start: 20100715, end: 20100902
  3. FLUOROURACIL [Suspect]
     Route: 041
     Dates: start: 20101104, end: 20110217
  4. FLUOROURACIL [Suspect]
     Route: 040
     Dates: start: 20110303, end: 20110303
  5. LEVOLEUCOVORIN CALCIUM [Concomitant]
     Route: 041
     Dates: start: 20110303, end: 20110303
  6. PROCHLORPERAZINE [Concomitant]
     Route: 048
  7. FENTANYL-100 [Concomitant]
     Route: 062
  8. PANITUMUMAB [Suspect]
     Dosage: 6 MG/KG, Q2WK
     Route: 041
     Dates: start: 20100930, end: 20110303
  9. FLUOROURACIL [Suspect]
     Route: 041
     Dates: start: 20110303, end: 20110303
  10. OXALIPLATIN [Concomitant]
     Route: 041
     Dates: start: 20101104, end: 20110217
  11. LEVOLEUCOVORIN CALCIUM [Concomitant]
     Indication: COLORECTAL CANCER
     Route: 041
     Dates: start: 20100715, end: 20101027
  12. BESOFTEN [Concomitant]
     Dosage: UNK
     Route: 062
  13. MAGMITT [Concomitant]
     Route: 048
  14. FLUOROURACIL [Suspect]
     Route: 041
     Dates: start: 20100715, end: 20101027
  15. LEVOLEUCOVORIN CALCIUM [Concomitant]
     Route: 041
     Dates: start: 20101104, end: 20110217
  16. FLUOROURACIL [Suspect]
     Route: 040
     Dates: start: 20101104, end: 20110217
  17. DECADRON [Concomitant]
     Dosage: UNK
     Route: 042
  18. CALCIUM CARBONATE [Concomitant]
     Dosage: UNK
     Route: 042
  19. ALINAMIN-F [Concomitant]
     Route: 048
  20. RABEPRAZOLE SODIUM [Concomitant]
     Route: 048
  21. CAMPTOSAR [Suspect]
     Indication: COLORECTAL CANCER
     Route: 041
     Dates: start: 20110303, end: 20110303
  22. OXALIPLATIN [Concomitant]
     Indication: COLORECTAL CANCER
     Route: 041
     Dates: start: 20100715, end: 20101027
  23. KYTRIL [Concomitant]
     Dosage: UNK
     Route: 042
  24. MAGNESIUM SULFATE [Concomitant]
     Dosage: UNK
     Route: 042
  25. OXYCONTIN [Concomitant]
     Route: 048
  26. OXINORM [Concomitant]
     Route: 048

REACTIONS (5)
  - COLORECTAL CANCER [None]
  - DERMATITIS [None]
  - DIARRHOEA [None]
  - WHITE BLOOD CELL COUNT DECREASED [None]
  - INTERSTITIAL LUNG DISEASE [None]
